FAERS Safety Report 13802311 (Version 4)
Quarter: 2019Q2

REPORT INFORMATION
  Report Type: Spontaneous
  Country: JP (occurrence: JP)
  Receive Date: 20170728
  Receipt Date: 20190531
  Transmission Date: 20190711
  Serious: Yes (Hospitalization, Other)
  Sender: FDA-Public Use
  Company Number: PHJP2017JP023911

PATIENT
  Sex: Female

DRUGS (1)
  1. GILENYA [Suspect]
     Active Substance: FINGOLIMOD HYDROCHLORIDE
     Indication: MULTIPLE SCLEROSIS
     Dosage: 0.5 MG, QD
     Route: 048

REACTIONS (5)
  - Lymphocyte count decreased [Unknown]
  - Rebound effect [Not Recovered/Not Resolved]
  - Central nervous system lesion [Unknown]
  - Herpes zoster [Unknown]
  - Multiple sclerosis relapse [Not Recovered/Not Resolved]
